FAERS Safety Report 24346068 (Version 1)
Quarter: 2024Q3

REPORT INFORMATION
  Report Type: Spontaneous
  Country: US (occurrence: US)
  Receive Date: 20240921
  Receipt Date: 20240921
  Transmission Date: 20241016
  Serious: No
  Sender: AUROBINDO
  Company Number: US-AUROBINDO-AUR-APL-2024-031162

PATIENT
  Age: 70 Year
  Sex: Female
  Weight: 61.235 kg

DRUGS (1)
  1. ALENDRONATE SODIUM [Suspect]
     Active Substance: ALENDRONATE SODIUM
     Indication: Product used for unknown indication
     Dosage: UNK (ONCE A WEEK)
     Route: 048

REACTIONS (2)
  - Bone pain [Unknown]
  - Myalgia [Unknown]
